FAERS Safety Report 8852653 (Version 1)
Quarter: 2012Q4

REPORT INFORMATION
  Report Type: 
  Country: US (occurrence: US)
  Receive Date: 20121022
  Receipt Date: 20121022
  Transmission Date: 20130627
  Serious: No
  Sender: FDA-Public Use
  Company Number: US-ASTRAZENECA-2012SE14304

PATIENT
  Age: 90 Year
  Sex: Male
  Weight: 61.2 kg

DRUGS (6)
  1. NEXIUM EERD [Suspect]
     Indication: GASTROOESOPHAGEAL REFLUX DISEASE
     Route: 048
     Dates: start: 2004
  2. NEXIUM EERD [Suspect]
     Indication: GASTROOESOPHAGEAL REFLUX DISEASE
     Route: 048
     Dates: start: 2004
  3. FELODIPINE [Suspect]
     Indication: HYPERTENSION
     Route: 048
     Dates: start: 1992, end: 2010
  4. FELODIPINE [Suspect]
     Indication: HYPERTENSION
     Route: 048
     Dates: start: 2010
  5. ZESTRIL [Suspect]
     Indication: HYPERTENSION
     Route: 048
     Dates: start: 1992
  6. INDERAL [Suspect]
     Indication: HYPERTENSION
     Route: 048
     Dates: start: 1992

REACTIONS (4)
  - Weight decreased [Unknown]
  - Body height decreased [Unknown]
  - Hypotension [Recovered/Resolved]
  - Gastrooesophageal reflux disease [Unknown]
